FAERS Safety Report 21371904 (Version 12)
Quarter: 2023Q1

REPORT INFORMATION
  Report Type: Report from Study
  Country: CN (occurrence: None)
  Receive Date: 20220923
  Receipt Date: 20230206
  Transmission Date: 20230417
  Serious: Yes (Hospitalization)
  Sender: FDA-Public Use
  Company Number: CN-Eisai Medical Research-EC-2022-124227

PATIENT
  Age: 41 Year
  Sex: Female
  Weight: 47.8 kg

DRUGS (8)
  1. LENVATINIB [Suspect]
     Active Substance: LENVATINIB
     Indication: Adenocarcinoma gastric
     Route: 048
     Dates: start: 20220902, end: 20220916
  2. LENVATINIB [Suspect]
     Active Substance: LENVATINIB
     Indication: Oesophageal adenocarcinoma
  3. PEMBROLIZUMAB [Suspect]
     Active Substance: PEMBROLIZUMAB
     Indication: Adenocarcinoma gastric
     Route: 041
     Dates: start: 20220902, end: 20220902
  4. PEMBROLIZUMAB [Suspect]
     Active Substance: PEMBROLIZUMAB
     Indication: Oesophageal adenocarcinoma
  5. POTASSIUM CHLORIDE [Concomitant]
     Active Substance: POTASSIUM CHLORIDE
     Dates: start: 20220811, end: 20220913
  6. METOPROLOL [Concomitant]
     Active Substance: METOPROLOL
     Dates: start: 20220811, end: 20220917
  7. BACILLUS MESENTERICUS;CLOSTRIDIUM BUTYRICUM;ENTEROCOCCUS FAECALIS [Concomitant]
     Dates: start: 20220903, end: 20220910
  8. ADALAT [Concomitant]
     Active Substance: NIFEDIPINE
     Dates: start: 20220908, end: 20220917

REACTIONS (3)
  - Gastrointestinal disorder [Unknown]
  - Blood creatinine increased [Recovered/Resolved]
  - Haematological infection [Recovered/Resolved]

NARRATIVE: CASE EVENT DATE: 20220913
